FAERS Safety Report 7958018-8 (Version None)
Quarter: 2011Q4

REPORT INFORMATION
  Report Type: 
  Country: None (occurrence: None)
  Receive Date: 20111205
  Receipt Date: 20111202
  Transmission Date: 20120403
  Serious: Yes (Death, Life-Threatening, Other)
  Sender: FDA-Public Use
  Company Number: DE-B.I. PHARMACEUTICALS,INC./RIDGEFIELD-2011-DE-06581DE

PATIENT
  Sex: Female

DRUGS (12)
  1. PRADAXA [Suspect]
     Indication: ATRIAL FIBRILLATION
     Dosage: 300 MG
     Dates: start: 20111111
  2. TORSEMIDE [Concomitant]
     Dosage: 0.25 ANZ
  3. TOREM 10 [Concomitant]
     Dosage: 1 ANZ
  4. DECORTIN 12,5 [Concomitant]
     Dosage: 1 ANZ
     Dates: end: 20111118
  5. SIFROL 0.35 MG [Concomitant]
     Dosage: 0.35 MG
  6. SPIRIVA 18 MCG HARTKAP M IHP [Concomitant]
     Dosage: 18 MCG
  7. VIANI FORTE 50UG/500UG DIS [Concomitant]
     Dosage: 2 ANZ
  8. LEVODOPA COMP B 100/25MG [Concomitant]
     Dosage: 1 ANZ
  9. SULPIRID 50 1A PHARMA [Concomitant]
     Dosage: 3 ANZ
  10. STALEVO 100/25/200 MG [Concomitant]
     Dosage: 1-1-1-1
  11. AMANTADIN AL 100 [Concomitant]
     Dosage: 3 ANZ
  12. SIMVASTATIN Q-PH 40MG FTA [Concomitant]
     Dosage: 1 ANZ

REACTIONS (5)
  - DEATH [None]
  - EXSANGUINATION [None]
  - HAEMORRHAGE [None]
  - FACIAL BONES FRACTURE [None]
  - FALL [None]
